FAERS Safety Report 13409940 (Version 1)
Quarter: 2017Q2

REPORT INFORMATION
  Report Type: Spontaneous
  Country: US (occurrence: US)
  Receive Date: 20170406
  Receipt Date: 20170406
  Transmission Date: 20170830
  Serious: No
  Sender: FDA-Public Use
  Company Number: US-PFIZER INC-2017147290

PATIENT
  Age: 58 Year
  Sex: Female

DRUGS (1)
  1. IBRANCE [Suspect]
     Active Substance: PALBOCICLIB
     Indication: BREAST CANCER
     Dosage: 125 MG, CYCLIC, (21 DA OF 28 DA)
     Route: 048
     Dates: start: 20170204

REACTIONS (2)
  - Nasal dryness [Unknown]
  - Dry eye [Unknown]

NARRATIVE: CASE EVENT DATE: 20170403
